FAERS Safety Report 25918192 (Version 1)
Quarter: 2025Q4

REPORT INFORMATION
  Report Type: Spontaneous
  Country: PR (occurrence: PR)
  Receive Date: 20251014
  Receipt Date: 20251014
  Transmission Date: 20260118
  Serious: Yes (Other)
  Sender: ABBVIE
  Company Number: PR-ABBVIE-6501576

PATIENT
  Age: 35 Year
  Sex: Female

DRUGS (1)
  1. RINVOQ [Suspect]
     Active Substance: UPADACITINIB
     Indication: Crohn^s disease
     Route: 048
     Dates: start: 202505

REACTIONS (2)
  - Ileostomy [Unknown]
  - Product residue present [Recovered/Resolved]

NARRATIVE: CASE EVENT DATE: 20250601
